FAERS Safety Report 10654293 (Version 1)
Quarter: 2014Q4

REPORT INFORMATION
  Report Type: Spontaneous
  Country: US (occurrence: US)
  Receive Date: 20141216
  Receipt Date: 20141216
  Transmission Date: 20150529
  Serious: Yes (Hospitalization)
  Sender: FDA-Public Use
  Company Number: US-ASTRAZENECA-2014SE95044

PATIENT
  Age: 76 Year
  Sex: Male

DRUGS (3)
  1. ASPIRIN. [Concomitant]
     Active Substance: ASPIRIN
     Dosage: LOW DOSE
  2. BRILINTA [Suspect]
     Active Substance: TICAGRELOR
     Indication: ACUTE MYOCARDIAL INFARCTION
     Dosage: LOADING DOSE OF 180 MG AND MORNING DOSE OF 90 MG
     Route: 048
     Dates: start: 20141113, end: 201411
  3. BRILINTA [Suspect]
     Active Substance: TICAGRELOR
     Indication: ANGINA UNSTABLE
     Dosage: LOADING DOSE OF 180 MG AND MORNING DOSE OF 90 MG
     Route: 048
     Dates: start: 20141113, end: 201411

REACTIONS (2)
  - Central nervous system haemorrhage [Unknown]
  - Intentional product misuse [Unknown]

NARRATIVE: CASE EVENT DATE: 20141114
